FAERS Safety Report 14328760 (Version 4)
Quarter: 2019Q3

REPORT INFORMATION
  Report Type: Report from Study
  Country: US (occurrence: US)
  Receive Date: 20171227
  Receipt Date: 20190809
  Transmission Date: 20191004
  Serious: Yes (Death, Hospitalization)
  Sender: FDA-Public Use
  Company Number: US-ACTELION-A-NJ2017-164596

PATIENT
  Age: 66 Year
  Sex: Male

DRUGS (1)
  1. OPSUMIT [Suspect]
     Active Substance: MACITENTAN
     Indication: PULMONARY ARTERIAL HYPERTENSION
     Dosage: 10 MG, QD
     Route: 048
     Dates: start: 20170920

REACTIONS (5)
  - Gastrointestinal polyp haemorrhage [Unknown]
  - Internal haemorrhage [Unknown]
  - Death [Fatal]
  - Anaemia [Unknown]
  - Hospitalisation [Recovering/Resolving]

NARRATIVE: CASE EVENT DATE: 20171212
